FAERS Safety Report 21616265 (Version 2)
Quarter: 2022Q4

REPORT INFORMATION
  Report Type: Spontaneous
  Country: US (occurrence: US)
  Receive Date: 20221118
  Receipt Date: 20221125
  Transmission Date: 20230112
  Serious: Yes (Other)
  Sender: FDA-Public Use
  Company Number: US-MERCK-MNSC-02285665

PATIENT
  Sex: Female
  Weight: 50.34 kg

DRUGS (5)
  1. KEYTRUDA [Suspect]
     Active Substance: PEMBROLIZUMAB
     Indication: Small cell lung cancer
     Dosage: A TOTAL OF 4 CYCLES
     Dates: start: 20220812, end: 20221025
  2. MEGASET [Concomitant]
  3. OXYCODONE [Concomitant]
     Active Substance: OXYCODONE
  4. EUTHYROX [Concomitant]
     Active Substance: LEVOTHYROXINE SODIUM
  5. IVABRADINE [Concomitant]
     Active Substance: IVABRADINE

REACTIONS (2)
  - Malignant neoplasm progression [Not Recovered/Not Resolved]
  - Product use in unapproved indication [Unknown]

NARRATIVE: CASE EVENT DATE: 20220101
